FAERS Safety Report 5989700-X (Version None)
Quarter: 2008Q4

REPORT INFORMATION
  Report Type: 
  Country: None (occurrence: None)
  Receive Date: 20081210
  Receipt Date: 20081209
  Transmission Date: 20090506
  Serious: Yes (Life-Threatening)
  Sender: FDA-Public Use
  Company Number: US-B.I. PHARMACEUTICALS,INC./RIDGEFIELD-2008-BP-13661BP

PATIENT
  Sex: Male

DRUGS (6)
  1. SPIRIVA [Suspect]
     Indication: CHRONIC OBSTRUCTIVE PULMONARY DISEASE
     Dosage: 18MCG
     Route: 055
     Dates: start: 20080125
  2. ADVAIR HFA [Concomitant]
     Route: 055
  3. BENAZEPRIL HYDROCHLORIDE [Concomitant]
  4. NASONEX [Concomitant]
     Indication: NASAL CONGESTION
  5. BUPROPION HCL [Concomitant]
     Dosage: 300MG
  6. AMLODIPINE BESYLATE AND BENAZEPRIL HCL [Concomitant]

REACTIONS (1)
  - DYSPNOEA [None]
